FAERS Safety Report 6871517-5 (Version None)
Quarter: 2010Q3

REPORT INFORMATION
  Report Type: 
  Country: None (occurrence: None)
  Receive Date: 20100723
  Receipt Date: 20100719
  Transmission Date: 20110219
  Serious: Yes (Hospitalization, Other)
  Sender: FDA-Public Use
  Company Number: FR-WYE-G06421610

PATIENT
  Sex: Female

DRUGS (6)
  1. PIPERACILLIN AND TAZOBACTAM [Suspect]
     Indication: FEBRILE BONE MARROW APLASIA
     Route: 042
     Dates: start: 20100527, end: 20100531
  2. OXYCODONE HCL [Concomitant]
     Route: 042
     Dates: start: 20100530
  3. NEXIUM [Concomitant]
     Route: 042
     Dates: start: 20100531
  4. PRIMPERAN TAB [Concomitant]
     Dosage: IF NEED BE
     Route: 042
  5. FLUCONAZOLE [Suspect]
     Indication: FEBRILE BONE MARROW APLASIA
     Route: 042
     Dates: start: 20100527, end: 20100531
  6. ZOVIRAX [Suspect]
     Indication: FEBRILE BONE MARROW APLASIA
     Route: 042
     Dates: start: 20100527, end: 20100531

REACTIONS (4)
  - ENTEROBACTER BACTERAEMIA [None]
  - INJECTION SITE PRURITUS [None]
  - INJECTION SITE RASH [None]
  - RASH GENERALISED [None]
